FAERS Safety Report 17407690 (Version 2)
Quarter: 2020Q1

REPORT INFORMATION
  Report Type: Spontaneous
  Country: CL (occurrence: CL)
  Receive Date: 20200212
  Receipt Date: 20200226
  Transmission Date: 20200409
  Serious: Yes (Other)
  Sender: FDA-Public Use
  Company Number: CL-ROCHE-2545726

PATIENT
  Age: 62 Year
  Weight: 73 kg

DRUGS (10)
  1. VINCRISTINE SULFATE. [Concomitant]
     Active Substance: VINCRISTINE SULFATE
     Indication: DIFFUSE LARGE B-CELL LYMPHOMA
     Route: 065
     Dates: start: 2018
  2. PREDNISONE. [Concomitant]
     Active Substance: PREDNISONE
     Indication: DIFFUSE LARGE B-CELL LYMPHOMA
     Route: 065
     Dates: start: 2018
  3. IFOSFAMIDE. [Concomitant]
     Active Substance: IFOSFAMIDE
     Indication: DIFFUSE LARGE B-CELL LYMPHOMA
     Route: 065
     Dates: start: 201907
  4. ETOPOSIDE. [Concomitant]
     Active Substance: ETOPOSIDE
     Indication: DIFFUSE LARGE B-CELL LYMPHOMA
     Route: 065
     Dates: start: 201907
  5. CYCLOPHOSPHAMIDE. [Concomitant]
     Active Substance: CYCLOPHOSPHAMIDE
     Indication: DIFFUSE LARGE B-CELL LYMPHOMA
     Route: 065
     Dates: start: 2018
  6. RITUXIMAB. [Suspect]
     Active Substance: RITUXIMAB
     Route: 065
     Dates: start: 201907
  7. DOXORUBICIN HYDROCHLORIDE. [Concomitant]
     Active Substance: DOXORUBICIN HYDROCHLORIDE
     Indication: DIFFUSE LARGE B-CELL LYMPHOMA
     Route: 065
     Dates: start: 2018
  8. CARBOPLATIN. [Concomitant]
     Active Substance: CARBOPLATIN
     Indication: DIFFUSE LARGE B-CELL LYMPHOMA
     Route: 065
     Dates: start: 201907
  9. RITUXIMAB. [Suspect]
     Active Substance: RITUXIMAB
     Indication: DIFFUSE LARGE B-CELL LYMPHOMA
     Route: 065
     Dates: start: 2018
  10. LOSARTAN. [Concomitant]
     Active Substance: LOSARTAN
     Indication: ESSENTIAL HYPERTENSION
     Route: 065

REACTIONS (4)
  - Pain in extremity [Unknown]
  - Diffuse large B-cell lymphoma recurrent [Unknown]
  - Resorption bone increased [Unknown]
  - Vitamin D deficiency [Unknown]

NARRATIVE: CASE EVENT DATE: 201903
